FAERS Safety Report 13864426 (Version 1)
Quarter: 2017Q3

REPORT INFORMATION
  Report Type: Spontaneous
  Country: US (occurrence: US)
  Receive Date: 20170812
  Receipt Date: 20170812
  Transmission Date: 20171127
  Serious: Yes (Disabling)
  Sender: FDA-Public Use
  Company Number: None

PATIENT
  Age: 59 Year
  Sex: Female
  Weight: 54 kg

DRUGS (4)
  1. CALCIUM SUPPLEMENT [Concomitant]
     Active Substance: CALCIUM
  2. PRILOSEC [Concomitant]
     Active Substance: OMEPRAZOLE MAGNESIUM
  3. PROHANCE [Suspect]
     Active Substance: GADOTERIDOL
     Indication: SCAN WITH CONTRAST
     Route: 042
     Dates: start: 20170502, end: 20170502
  4. PRESERVISION [Concomitant]
     Active Substance: MINERALS\VITAMINS

REACTIONS (17)
  - Gingival disorder [None]
  - Temperature intolerance [None]
  - Burning sensation [None]
  - Back pain [None]
  - Gingival pain [None]
  - Rash [None]
  - Acne [None]
  - Paraesthesia [None]
  - Neck pain [None]
  - Condition aggravated [None]
  - Contrast media reaction [None]
  - Hypoaesthesia [None]
  - Dysgeusia [None]
  - Pain in jaw [None]
  - Pain in extremity [None]
  - Dysphagia [None]
  - Muscular weakness [None]

NARRATIVE: CASE EVENT DATE: 20170502
